FAERS Safety Report 8559792-2 (Version None)
Quarter: 2012Q3

REPORT INFORMATION
  Report Type: 
  Country: None (occurrence: None)
  Receive Date: 20120802
  Receipt Date: 20120730
  Transmission Date: 20120928
  Serious: No
  Sender: FDA-Public Use
  Company Number: US-PFIZER INC-2012140845

PATIENT
  Age: 40 Year
  Sex: Male
  Weight: 163 kg

DRUGS (8)
  1. XANAX [Suspect]
     Indication: ANXIETY
     Dosage: UNK
     Dates: start: 20110101
  2. NEURONTIN [Suspect]
     Indication: ANGER
  3. XANAX [Suspect]
     Indication: ANGER
  4. ZOLOFT [Suspect]
     Indication: ANXIETY
     Dosage: UNK
     Dates: start: 20110101, end: 20110101
  5. CELEXA [Suspect]
     Indication: ANGER
  6. ZOLOFT [Suspect]
     Indication: ANGER
  7. CELEXA [Suspect]
     Indication: ANXIETY
     Dosage: UNK
     Dates: start: 20110101, end: 20110101
  8. NEURONTIN [Suspect]
     Indication: ANXIETY
     Dosage: UNK

REACTIONS (3)
  - HYPERTENSION [None]
  - WEIGHT DECREASED [None]
  - DRUG INEFFECTIVE [None]
